FAERS Safety Report 22134089 (Version 3)
Quarter: 2023Q2

REPORT INFORMATION
  Report Type: Spontaneous
  Country: US (occurrence: US)
  Receive Date: 20230324
  Receipt Date: 20230407
  Transmission Date: 20230721
  Serious: Yes (Hospitalization)
  Sender: FDA-Public Use
  Company Number: US-UNITED THERAPEUTICS-UNT-2023-008142

PATIENT
  Age: 62 Year
  Sex: Male
  Weight: 80.726 kg

DRUGS (4)
  1. REMODULIN [Suspect]
     Active Substance: TREPROSTINIL
     Indication: Pulmonary arterial hypertension
     Dosage: 0.1228 ?G/KG, CONTINUING (SELF-FILL CASSETTE WITH 3 ML; RATE OF 56 MCL PER HOUR)
     Route: 058
  2. REMODULIN [Suspect]
     Active Substance: TREPROSTINIL
     Dosage: UNK, CONTINUING
     Route: 058
     Dates: start: 20230227
  3. OPSUMIT [Concomitant]
     Active Substance: MACITENTAN
     Indication: Product used for unknown indication
     Dosage: UNK
     Route: 065
  4. ADCIRCA [Concomitant]
     Active Substance: TADALAFIL
     Indication: Pulmonary arterial hypertension
     Dosage: UNK
     Route: 065

REACTIONS (9)
  - Infusion site infection [Unknown]
  - Device leakage [Recovered/Resolved]
  - Device leakage [Recovered/Resolved]
  - Device leakage [Recovered/Resolved]
  - Device leakage [Recovered/Resolved]
  - Device leakage [Recovered/Resolved]
  - Product quality issue [Unknown]
  - Wrong device used [Recovered/Resolved]
  - Device failure [Recovered/Resolved]

NARRATIVE: CASE EVENT DATE: 20230228
